FAERS Safety Report 8381577-0 (Version None)
Quarter: 2012Q2

REPORT INFORMATION
  Report Type: 
  Country: None (occurrence: None)
  Receive Date: 20120523
  Receipt Date: 20120514
  Transmission Date: 20120825
  Serious: Yes (Death, Hospitalization, Other)
  Sender: FDA-Public Use
  Company Number: US-MYLANLABS-2009AL000704

PATIENT
  Sex: Male
  Weight: 92.99 kg

DRUGS (22)
  1. SINGULAIR [Concomitant]
  2. ACTOS [Concomitant]
  3. ASPIRIN [Concomitant]
  4. ZOCOR [Concomitant]
  5. IRON [Concomitant]
  6. VIAGRA [Concomitant]
  7. LOTRISONE [Concomitant]
  8. METFORMIN HCL [Concomitant]
  9. PLAVIX [Concomitant]
  10. SIMVASTATIN [Concomitant]
  11. FUROSEMIDE [Concomitant]
  12. CARVEDILOL [Concomitant]
  13. MUCINEX [Concomitant]
     Dosage: BID PRN
  14. TOPROL-XL [Concomitant]
  15. PROPOXYPHENE HYDROCHLORIDE [Concomitant]
     Dosage: 1 TO 2 TABLETS Q4H PRN
  16. ATACAND [Concomitant]
  17. QUINIDINE HCL [Concomitant]
  18. LORATADINE [Concomitant]
  19. DIGOXIN [Suspect]
     Indication: HEART RATE IRREGULAR
     Route: 048
     Dates: start: 20060403, end: 20080321
  20. BENAZEPRIL HYDROCHLORIDE [Concomitant]
  21. NITROGLYCERIN [Concomitant]
  22. CRESTOR [Concomitant]

REACTIONS (48)
  - PAIN [None]
  - EMOTIONAL DISTRESS [None]
  - ECONOMIC PROBLEM [None]
  - CHEST DISCOMFORT [None]
  - ABDOMINAL DISCOMFORT [None]
  - CHEST PAIN [None]
  - PROSTATIC SPECIFIC ANTIGEN INCREASED [None]
  - BLOOD GLUCOSE INCREASED [None]
  - CORONARY ARTERIAL STENT INSERTION [None]
  - DEATH [None]
  - DYSLIPIDAEMIA [None]
  - PACKED RED BLOOD CELL TRANSFUSION [None]
  - TROPONIN INCREASED [None]
  - CARDIOMYOPATHY [None]
  - BREATH SOUNDS ABNORMAL [None]
  - TOXICITY TO VARIOUS AGENTS [None]
  - MYOCARDIAL INFARCTION [None]
  - RHINITIS ALLERGIC [None]
  - PERITONEAL HAEMORRHAGE [None]
  - STOMACH MASS [None]
  - CARDIOMEGALY [None]
  - OCCULT BLOOD POSITIVE [None]
  - DIABETES MELLITUS [None]
  - BUNDLE BRANCH BLOCK [None]
  - PLEURAL EFFUSION [None]
  - MITRAL VALVE INCOMPETENCE [None]
  - COMPUTERISED TOMOGRAM ABNORMAL [None]
  - ECHOCARDIOGRAM ABNORMAL [None]
  - PROSTATOMEGALY [None]
  - ILL-DEFINED DISORDER [None]
  - EPIGASTRIC DISCOMFORT [None]
  - ANGIOPLASTY [None]
  - GOUT [None]
  - GASTRITIS ATROPHIC [None]
  - GALLBLADDER DISORDER [None]
  - HAEMATOCRIT DECREASED [None]
  - CATHETERISATION CARDIAC ABNORMAL [None]
  - GASTRIC POLYPS [None]
  - GLYCOSYLATED HAEMOGLOBIN INCREASED [None]
  - ABDOMINAL CAVITY DRAINAGE [None]
  - ABDOMINAL MASS [None]
  - HAEMOGLOBIN DECREASED [None]
  - HYPERTENSION [None]
  - CORONARY ARTERY DISEASE [None]
  - ASCITES [None]
  - BUNDLE BRANCH BLOCK LEFT [None]
  - LEFT VENTRICULAR HYPERTROPHY [None]
  - DYSPEPSIA [None]
